FAERS Safety Report 5781984-6 (Version None)
Quarter: 2008Q2

REPORT INFORMATION
  Report Type: 
  Country: None (occurrence: None)
  Receive Date: 20080623
  Receipt Date: 20080227
  Transmission Date: 20081010
  Serious: No
  Sender: FDA-Public Use
  Company Number: US-ASTRAZENECA-2008UW00607

PATIENT
  Age: 2983 Day
  Sex: Male

DRUGS (3)
  1. RHINOCORT [Suspect]
     Indication: RHINITIS ALLERGIC
     Route: 045
     Dates: start: 20080108, end: 20080108
  2. NYQUIL [Concomitant]
     Dates: start: 20080108, end: 20080108
  3. ROBITUSSIN [Concomitant]

REACTIONS (2)
  - DYSPNOEA [None]
  - TACHYCARDIA [None]
